FAERS Safety Report 19432648 (Version 2)
Quarter: 2021Q2

REPORT INFORMATION
  Report Type: Spontaneous
  Country: FR (occurrence: FR)
  Receive Date: 20210618
  Receipt Date: 20210625
  Transmission Date: 20210717
  Serious: Yes (Hospitalization, Other)
  Sender: FDA-Public Use
  Company Number: FR-LUPIN PHARMACEUTICALS INC.-2021-09593

PATIENT
  Age: 54 Year
  Sex: Male
  Weight: 63 kg

DRUGS (3)
  1. VANCOMYCIN [Suspect]
     Active Substance: VANCOMYCIN
     Indication: ENTEROCOCCAL INFECTION
     Dosage: 3000 MILLIGRAM, QD (DILUTED IN 5% GLUCOSE, 31.25MG/ML AT A MAXIMAL DOSAGE OF 4ML/HOUR); INJECTION?IN
     Route: 042
  2. VANCOMYCIN [Suspect]
     Active Substance: VANCOMYCIN
     Indication: ENTEROBACTER INFECTION
  3. GLUCOSE [Concomitant]
     Active Substance: DEXTROSE
     Indication: VEHICLE SOLUTION USE
     Dosage: UNK
     Route: 042

REACTIONS (6)
  - Accidental overdose [Recovering/Resolving]
  - Administration site extravasation [Recovering/Resolving]
  - Skin necrosis [Recovering/Resolving]
  - Toxicity to various agents [Recovering/Resolving]
  - Product administration error [Unknown]
  - Calciphylaxis [Recovering/Resolving]
